FAERS Safety Report 14860883 (Version 1)
Quarter: 2018Q2

REPORT INFORMATION
  Report Type: Report from Study
  Country: US (occurrence: US)
  Receive Date: 20180508
  Receipt Date: 20180508
  Transmission Date: 20180711
  Serious: No
  Sender: FDA-Public Use
  Company Number: US-THERATECHNOLOGIES, INC.-TH-2018-00257

PATIENT

DRUGS (19)
  1. OXYCODON [Concomitant]
     Active Substance: OXYCODONE
     Dosage: 5 MG MILLIGRAM(S), PRN
     Route: 048
     Dates: start: 20161108
  2. CITALOPRAM [Concomitant]
     Active Substance: CITALOPRAM HYDROBROMIDE
     Dosage: 20 MG MILLIGRAM(S), UNK
     Route: 048
     Dates: start: 20161108, end: 20170301
  3. EDURANT [Concomitant]
     Active Substance: RILPIVIRINE HYDROCHLORIDE
     Dosage: 25 MG MILLIGRAM(S), UNK
     Route: 048
     Dates: start: 20161108
  4. EGRIFTA [Suspect]
     Active Substance: TESAMORELIN
     Indication: LIPODYSTROPHY ACQUIRED
     Dosage: 1 MG MILLIGRAM(S), DAILY DOSE
     Route: 058
     Dates: start: 20160716
  5. METFORMIN [Concomitant]
     Active Substance: METFORMIN HYDROCHLORIDE
     Dosage: 500 MG MILLIGRAM(S), UNK
     Route: 048
     Dates: start: 20161108, end: 20170301
  6. LORAZEPAM. [Concomitant]
     Active Substance: LORAZEPAM
     Dosage: 0.5 MG MILLIGRAM(S), UNK
     Route: 048
     Dates: start: 20161108
  7. VITAMIN E                          /00110501/ [Concomitant]
     Active Substance: TOCOPHEROL
     Dosage: 400 UNITS, UNK
     Route: 048
     Dates: start: 20161108
  8. ASPIRIN (E.C.) [Concomitant]
     Active Substance: ASPIRIN
     Dosage: 81 MG MILLIGRAM(S), UNK
     Route: 048
     Dates: start: 20161108
  9. SELZENTRY [Concomitant]
     Active Substance: MARAVIROC
     Dosage: 300 MG MILLIGRAM(S), UNK
     Route: 048
     Dates: start: 20161108
  10. VITAMIN C [Concomitant]
     Active Substance: ASCORBIC ACID
     Dosage: 500 MG MILLIGRAM(S), UNK
     Route: 048
     Dates: start: 20161108
  11. B COMPLEX                          /00322001/ [Concomitant]
     Active Substance: CALCIUM PANTOTHENATE\CYANOCOBALAMIN\NIACINAMIDE\PYRIDOXINE HYDROCHLORIDE\RIBOFLAVIN\THIAMINE HYDROCHLORIDE
     Dosage: UNK
     Route: 048
     Dates: start: 20161108
  12. TIVICAY [Concomitant]
     Active Substance: DOLUTEGRAVIR SODIUM
     Dosage: 50 MG MILLIGRAM(S), UNK
     Route: 048
     Dates: start: 20161108
  13. LOVAZA [Concomitant]
     Active Substance: OMEGA-3-ACID ETHYL ESTERS
     Dosage: 1 G GRAM(S), UNK
     Route: 048
     Dates: start: 20161108
  14. AZELASTINE. [Concomitant]
     Active Substance: AZELASTINE HYDROCHLORIDE
     Dosage: 0.1 % PERCENT, SPRAY UNK
     Route: 045
     Dates: start: 20161108
  15. AMLODIPINE [Concomitant]
     Active Substance: AMLODIPINE BESYLATE
     Dosage: 5 MG MILLIGRAM(S), UNK
     Route: 048
     Dates: start: 20161108
  16. LISINOPRIL. [Concomitant]
     Active Substance: LISINOPRIL
     Dosage: 10 MG MILLIGRAM(S), UNK
     Route: 048
     Dates: start: 20161108
  17. BIOTIN [Concomitant]
     Active Substance: BIOTIN
     Dosage: 1000 MICROGRAM(S), UNK
     Route: 048
     Dates: start: 20161108
  18. SYMBICORT [Concomitant]
     Active Substance: BUDESONIDE\FORMOTEROL FUMARATE DIHYDRATE
     Dosage: 80-4.5
     Route: 055
     Dates: start: 20161108
  19. VITAMIN D3 [Concomitant]
     Active Substance: CHOLECALCIFEROL
     Dosage: 2000 UNITS, UNK
     Route: 048
     Dates: start: 20161108

REACTIONS (3)
  - Drug dose omission [Recovered/Resolved]
  - Oesophageal candidiasis [Recovering/Resolving]
  - Dysphagia [Recovering/Resolving]

NARRATIVE: CASE EVENT DATE: 2017
